FAERS Safety Report 17965168 (Version 4)
Quarter: 2020Q4

REPORT INFORMATION
  Report Type: Report from Study
  Country: None (occurrence: US)
  Receive Date: 20200701
  Receipt Date: 20201228
  Transmission Date: 20210113
  Serious: Yes (Hospitalization, Other)
  Sender: FDA-Public Use
  Company Number: US-ABBVIE-20K-163-3462630-00

PATIENT
  Sex: Male
  Weight: 112.14 kg

DRUGS (2)
  1. HUMIRA [Suspect]
     Active Substance: ADALIMUMAB
     Indication: COLITIS ULCERATIVE
     Route: 058
     Dates: start: 2016
  2. HUMIRA [Suspect]
     Active Substance: ADALIMUMAB
     Route: 058
     Dates: start: 2017

REACTIONS (7)
  - Carpal tunnel syndrome [Recovered/Resolved]
  - Cubital tunnel syndrome [Recovered/Resolved]
  - Joint injury [Recovering/Resolving]
  - Rotator cuff syndrome [Recovering/Resolving]
  - Iritis [Recovered/Resolved]
  - Post procedural swelling [Not Recovered/Not Resolved]
  - Osteoarthritis [Recovered/Resolved]

NARRATIVE: CASE EVENT DATE: 2016
